FAERS Safety Report 24428845 (Version 1)
Quarter: 2024Q4

REPORT INFORMATION
  Report Type: Spontaneous
  Country: US (occurrence: None)
  Receive Date: 20241011
  Receipt Date: 20241011
  Transmission Date: 20250114
  Serious: Yes (Death)
  Sender: Public
  Company Number: None

PATIENT
  Age: 58 Year
  Sex: Male

DRUGS (6)
  1. DALFAMPRIDINE [Suspect]
     Active Substance: DALFAMPRIDINE
     Indication: Multiple sclerosis
     Dosage: FREQUENCY : TWICE A DAY;?
     Route: 048
     Dates: start: 20200220, end: 20241011
  2. ASPIRIN [Concomitant]
     Active Substance: ASPIRIN
  3. BACLOFEN [Concomitant]
     Active Substance: BACLOFEN
  4. HUMALOG [Concomitant]
     Active Substance: INSULIN LISPRO
  5. Vitamin D3 5,000 [Concomitant]
  6. MAVENCLAD [Concomitant]
     Active Substance: CLADRIBINE

REACTIONS (1)
  - Death [None]

NARRATIVE: CASE EVENT DATE: 20241011
